FAERS Safety Report 8192867-9 (Version None)
Quarter: 2012Q1

REPORT INFORMATION
  Report Type: 
  Country: None (occurrence: None)
  Receive Date: 20120308
  Receipt Date: 20120228
  Transmission Date: 20120608
  Serious: Yes (Hospitalization, Other)
  Sender: FDA-Public Use
  Company Number: US-JNJFOC-20120204076

PATIENT
  Sex: Male
  Weight: 95.26 kg

DRUGS (5)
  1. CLONAZEPAM [Concomitant]
     Indication: RESTLESS LEGS SYNDROME
     Route: 065
     Dates: start: 20110101
  2. REMICADE [Suspect]
     Route: 042
     Dates: end: 20110101
  3. REMICADE [Suspect]
     Indication: RHEUMATOID ARTHRITIS
     Route: 042
     Dates: start: 20120101
  4. CRESTOR [Concomitant]
     Indication: BLOOD CHOLESTEROL
     Route: 065
  5. METHOTREXATE [Concomitant]
     Indication: RHEUMATOID ARTHRITIS
     Route: 065

REACTIONS (10)
  - RENAL ARTERY OCCLUSION [None]
  - FATIGUE [None]
  - FEELING COLD [None]
  - BLOOD PRESSURE INCREASED [None]
  - ARTHRALGIA [None]
  - GASTRIC DISORDER [None]
  - FEELING ABNORMAL [None]
  - GOUT [None]
  - PAIN IN EXTREMITY [None]
  - LISTLESS [None]
